FAERS Safety Report 4733232-3 (Version None)
Quarter: 2005Q3

REPORT INFORMATION
  Report Type: 
  Country: None (occurrence: None)
  Receive Date: 20050803
  Receipt Date: 20050722
  Transmission Date: 20060218
  Serious: Yes (Hospitalization)
  Sender: FDA-Public Use
  Company Number: FR-ROCHE-411520

PATIENT
  Age: 37 Year
  Sex: Female

DRUGS (5)
  1. FUZEON [Suspect]
     Route: 058
     Dates: start: 20050121
  2. GENTAMYCIN SULFATE [Suspect]
     Indication: DRUG USE FOR UNKNOWN INDICATION
     Route: 042
     Dates: start: 20050113, end: 20050127
  3. VIREAD [Suspect]
     Indication: DRUG USE FOR UNKNOWN INDICATION
     Route: 048
     Dates: start: 20050121, end: 20050130
  4. KALETRA [Suspect]
     Indication: DRUG USE FOR UNKNOWN INDICATION
     Route: 048
     Dates: start: 20050121
  5. ORBENINE [Suspect]
     Indication: DRUG USE FOR UNKNOWN INDICATION
     Route: 042
     Dates: start: 20050113, end: 20050223

REACTIONS (1)
  - HYPERCREATININAEMIA [None]
